FAERS Safety Report 22190084 (Version 18)
Quarter: 2023Q4

REPORT INFORMATION
  Report Type: Report from Study
  Country: BR (occurrence: None)
  Receive Date: 20230410
  Receipt Date: 20231010
  Transmission Date: 20240109
  Serious: Yes (Hospitalization)
  Sender: FDA-Public Use
  Company Number: BR-ROCHE-3324769

PATIENT
  Age: 41 Year
  Sex: Male
  Weight: 59.6 kg

DRUGS (30)
  1. MOSUNETUZUMAB [Suspect]
     Active Substance: MOSUNETUZUMAB
     Indication: B-cell lymphoma
     Dosage: START DATE OF MOST RECENT DOSE (45 MG) OF STUDY DRUG PRIOR TO AE AND SAE 17/MAY/2023?START DATE OF M
     Route: 058
     Dates: start: 20230331
  2. POLATUZUMAB VEDOTIN [Suspect]
     Active Substance: POLATUZUMAB VEDOTIN
     Indication: B-cell lymphoma
     Dosage: START DATE OF MOST RECENT DOSE OF STUDY DRUG PRIOR TO AE 17/MAY/2023?START DATE OF MOST RECENT DOSE
     Route: 042
     Dates: start: 20230331
  3. TRAMADOL [Concomitant]
     Active Substance: TRAMADOL\TRAMADOL HYDROCHLORIDE
     Indication: Bone pain
     Route: 048
     Dates: start: 202302
  4. ACYCLOVIR [Concomitant]
     Active Substance: ACYCLOVIR
     Dosage: 400 CAPSULE
     Route: 048
     Dates: start: 20210721
  5. TRIMETHOPRIM [Concomitant]
     Active Substance: TRIMETHOPRIM
     Route: 048
     Dates: start: 20210721
  6. SULFAMETHOXAZOLE [Concomitant]
     Active Substance: SULFAMETHOXAZOLE
     Dosage: 800 CAPSULE
     Route: 048
     Dates: start: 20210721
  7. OMEPRAZOLE [Concomitant]
     Active Substance: OMEPRAZOLE
     Route: 048
     Dates: start: 20210721
  8. BUSCOPAN SIMPLES [Concomitant]
     Route: 042
     Dates: start: 20230330, end: 20230503
  9. APREPITANT [Concomitant]
     Active Substance: APREPITANT
     Route: 042
     Dates: start: 20230330, end: 20230504
  10. IVERMECTIN [Concomitant]
     Active Substance: IVERMECTIN
     Route: 048
     Dates: start: 20230330, end: 20230330
  11. ONDANSETRON [Concomitant]
     Active Substance: ONDANSETRON
     Indication: Nausea
     Route: 042
     Dates: start: 20230330, end: 20230504
  12. ONDANSETRON [Concomitant]
     Active Substance: ONDANSETRON
     Indication: Vomiting
  13. MAGNESIUM OXIDE [Concomitant]
     Active Substance: MAGNESIUM OXIDE
     Route: 048
     Dates: start: 20230330, end: 20230504
  14. PANTOPRAZOLE [Concomitant]
     Active Substance: PANTOPRAZOLE
     Route: 048
     Dates: start: 20230330, end: 20230504
  15. PANTOPRAZOLE [Concomitant]
     Active Substance: PANTOPRAZOLE
     Route: 048
     Dates: start: 20230517
  16. PREGABALIN [Concomitant]
     Active Substance: PREGABALIN
     Indication: Pain
     Route: 048
     Dates: start: 20230404, end: 20230503
  17. PREGABALIN [Concomitant]
     Active Substance: PREGABALIN
     Route: 048
     Dates: start: 20230504, end: 20230620
  18. PREGABALIN [Concomitant]
     Active Substance: PREGABALIN
     Route: 048
     Dates: start: 20230517
  19. FUROSEMIDE [Concomitant]
     Active Substance: FUROSEMIDE
     Indication: Hypertension
     Route: 042
     Dates: start: 20230405, end: 20230504
  20. DIPYRONE [Concomitant]
     Active Substance: DIPYRONE
     Indication: Pain in extremity
     Route: 048
     Dates: start: 20230504
  21. DULOXETINE [Concomitant]
     Active Substance: DULOXETINE
     Indication: Pain in extremity
     Route: 048
     Dates: start: 20230504, end: 20230531
  22. ZOLEDRONIC ACID [Concomitant]
     Active Substance: ZOLEDRONIC ACID
     Indication: Osteoporosis
     Route: 042
     Dates: start: 20230428, end: 20230428
  23. ENOXAPARIN SODIUM [Concomitant]
     Active Substance: ENOXAPARIN SODIUM
     Indication: Deep vein thrombosis
     Route: 058
     Dates: start: 20230417, end: 20230503
  24. ENOXAPARIN SODIUM [Concomitant]
     Active Substance: ENOXAPARIN SODIUM
     Route: 058
     Dates: start: 20230522
  25. BROMOPRIDE [Concomitant]
     Active Substance: BROMOPRIDE
     Indication: Vomiting
     Route: 048
     Dates: start: 20230521
  26. MORPHINE [Concomitant]
     Active Substance: MORPHINE
     Indication: Pain
     Route: 042
     Dates: start: 20230522
  27. SODIUM CHLORIDE [Concomitant]
     Active Substance: SODIUM CHLORIDE
     Route: 042
     Dates: start: 20230522, end: 20230524
  28. DIPHENHYDRAMINE [Concomitant]
     Active Substance: DIPHENHYDRAMINE
     Route: 042
     Dates: start: 20230330, end: 20230504
  29. FILGRASTIM [Concomitant]
     Active Substance: FILGRASTIM
     Indication: Neutropenia
     Dosage: 300 OTHER
     Route: 058
     Dates: start: 20230424, end: 20230424
  30. FERINJECT [Concomitant]
     Active Substance: FERRIC CARBOXYMALTOSE
     Indication: Anaemia
     Route: 042
     Dates: start: 20230531, end: 20230531

REACTIONS (5)
  - Hypercalcaemia [Recovered/Resolved]
  - Pathological fracture [Recovered/Resolved]
  - Alanine aminotransferase increased [Recovered/Resolved]
  - Aspartate aminotransferase increased [Recovered/Resolved]
  - Bone operation [Recovered/Resolved]

NARRATIVE: CASE EVENT DATE: 20230402
